FAERS Safety Report 20116786 (Version 2)
Quarter: 2021Q4

REPORT INFORMATION
  Report Type: Spontaneous
  Country: US (occurrence: US)
  Receive Date: 20211126
  Receipt Date: 20211227
  Transmission Date: 20220303
  Serious: Yes (Other)
  Sender: FDA-Public Use
  Company Number: US-SA-SAC20211125001085

PATIENT
  Sex: Male

DRUGS (1)
  1. DUPIXENT [Suspect]
     Active Substance: DUPILUMAB
     Indication: Dermatitis atopic
     Dosage: 300 MG, QOW
     Route: 058
     Dates: start: 202007

REACTIONS (13)
  - Nephrolithiasis [Unknown]
  - Acne [Unknown]
  - Abdominal pain lower [Unknown]
  - Injection site pain [Unknown]
  - Pollakiuria [Unknown]
  - Depression [Not Recovered/Not Resolved]
  - Anxiety [Unknown]
  - Memory impairment [Unknown]
  - Rash erythematous [Unknown]
  - Skin tightness [Unknown]
  - Insomnia [Unknown]
  - Hypoacusis [Unknown]
  - Dermatitis atopic [Recovering/Resolving]
